FAERS Safety Report 20602364 (Version 4)
Quarter: 2022Q3

REPORT INFORMATION
  Report Type: Report from Study
  Country: CN (occurrence: CN)
  Receive Date: 20220316
  Receipt Date: 20220708
  Transmission Date: 20221027
  Serious: Yes (Hospitalization, Other)
  Sender: FDA-Public Use
  Company Number: CN-SA-SAC20220310000003

PATIENT
  Age: 59 Year
  Sex: Male
  Weight: 50 kg

DRUGS (10)
  1. DOCETAXEL [Suspect]
     Active Substance: DOCETAXEL
     Indication: Gastric cancer stage IV
     Dosage: 119 MG
     Route: 042
     Dates: start: 20220224
  2. OXYCODONE HYDROCHLORIDE [Concomitant]
     Active Substance: OXYCODONE HYDROCHLORIDE
     Indication: Pain
     Dosage: UNK
  3. METOPROLOL SUCCINATE [Concomitant]
     Active Substance: METOPROLOL SUCCINATE
  4. SHU XUE TONG [Concomitant]
     Indication: Cerebral infarction
     Dosage: 6 ML/ ONCE A DAY
     Dates: start: 20220306, end: 20220312
  5. SHORT PEPTIDE ENTERAL NUTRITION POWDER [Concomitant]
     Indication: Nutritional supplementation
     Dosage: ENTERAL NUTRITION POWDER, 100 G/FOUR TIMES A DAY FOR NUTRITIONAL SUPPORT;
     Dates: start: 20220307, end: 20220311
  6. KALLIDINOGENASE [Concomitant]
     Active Substance: KALLIDINOGENASE
     Indication: Cerebral infarction
     Dosage: 0.15IU/ ONCE A DAY
     Dates: start: 20220309, end: 20220312
  7. CAPTOPRIL [Concomitant]
     Active Substance: CAPTOPRIL
     Indication: Hypertension
     Dosage: UNK
  8. POLYSACCHARIDE IRON [Concomitant]
     Indication: Anaemia
     Dosage: UNK
     Dates: start: 20220227
  9. DEXAMETHASONE ACETATE [Concomitant]
     Active Substance: DEXAMETHASONE ACETATE
     Dosage: 8.25 MG, BID
     Dates: start: 20220223
  10. ENOXAPARIN SODIUM [Concomitant]
     Active Substance: ENOXAPARIN SODIUM

REACTIONS (10)
  - Thrombosis [Recovered/Resolved]
  - Cerebral infarction [Recovering/Resolving]
  - Hypoalbuminaemia [Not Recovered/Not Resolved]
  - Hypoproteinaemia [Unknown]
  - Myelosuppression [Recovered/Resolved]
  - White blood cell count decreased [Not Recovered/Not Resolved]
  - Neutrophil count decreased [Not Recovered/Not Resolved]
  - Hypoaesthesia [Not Recovered/Not Resolved]
  - Muscular weakness [Not Recovered/Not Resolved]
  - Anaemia [Unknown]

NARRATIVE: CASE EVENT DATE: 20220227
